FAERS Safety Report 8868687 (Version 6)
Quarter: 2013Q1

REPORT INFORMATION
  Report Type: Spontaneous
  Country: US (occurrence: US)
  Receive Date: 20121024
  Receipt Date: 20130304
  Transmission Date: 20140127
  Serious: Yes (Hospitalization, Other)
  Sender: FDA-Public Use
  Company Number: US-009507513-1104USA00898

PATIENT
  Sex: Female
  Weight: 65.76 kg

DRUGS (11)
  1. FOSAMAX PLUS D [Suspect]
     Indication: OSTEOPOROSIS
     Dosage: 70 MG, UNK
     Route: 048
     Dates: end: 201011
  2. FOSAMAX PLUS D [Suspect]
     Indication: OSTEOPENIA
  3. FOSAMAX [Suspect]
     Indication: OSTEOPOROSIS
     Dosage: 35 MG, QW
     Route: 048
  4. FOSAMAX [Suspect]
     Indication: OSTEOPENIA
     Dosage: 10 MG, QD
     Route: 048
     Dates: start: 19951020
  5. FOSAMAX [Suspect]
     Indication: OSTEOPOROSIS
     Dosage: 70 MG, UNK
     Route: 048
     Dates: end: 201011
  6. FOSAMAX [Suspect]
     Indication: OSTEOPENIA
  7. METHOTREXATE [Concomitant]
     Indication: RHEUMATOID ARTHRITIS
     Dosage: 4-8 ML, QW
  8. PREMPRO [Concomitant]
     Indication: OSTEOPOROSIS
  9. CALCIUM (UNSPECIFIED) [Concomitant]
     Indication: OSTEOPOROSIS
  10. CALCIUM (UNSPECIFIED) [Concomitant]
     Indication: OSTEOPENIA
  11. VITAMIN D (UNSPECIFIED) [Concomitant]
     Indication: OSTEOPOROSIS

REACTIONS (32)
  - Femur fracture [Unknown]
  - Intramedullary rod insertion [Unknown]
  - Anaemia postoperative [Unknown]
  - Breast cancer [Unknown]
  - Mastectomy [Unknown]
  - Uterine dilation and curettage [Unknown]
  - Colonoscopy [Unknown]
  - Electrocauterisation [Unknown]
  - Electrocauterisation [Unknown]
  - Rectal polypectomy [Unknown]
  - Hysterectomy [Unknown]
  - Female genital operation [Unknown]
  - Osteoarthritis [Unknown]
  - Occult blood positive [Unknown]
  - Anaemia [Unknown]
  - Macular degeneration [Unknown]
  - Arthritis [Unknown]
  - Occult blood [Unknown]
  - Pharyngitis [Unknown]
  - Head injury [Unknown]
  - Pelvic floor muscle weakness [Unknown]
  - Urinary incontinence [Unknown]
  - Corneal opacity [Unknown]
  - Hand deformity [Unknown]
  - Urine ketone body present [Unknown]
  - Cerebral atrophy [Unknown]
  - Cerebral microangiopathy [Unknown]
  - Gastrooesophageal reflux disease [Recovering/Resolving]
  - Drug hypersensitivity [Unknown]
  - Arthralgia [Unknown]
  - Myalgia [Unknown]
  - Dyspepsia [Recovering/Resolving]
